FAERS Safety Report 22935589 (Version 2)
Quarter: 2024Q3

REPORT INFORMATION
  Report Type: Spontaneous
  Country: US (occurrence: US)
  Receive Date: 20230912
  Receipt Date: 20240705
  Transmission Date: 20241016
  Serious: Yes (Hospitalization, Other)
  Sender: ACCORD
  Company Number: US-Accord-377421

PATIENT
  Age: 38 Year
  Sex: Female

DRUGS (3)
  1. CLOZAPINE [Suspect]
     Active Substance: CLOZAPINE
     Indication: Bipolar I disorder
     Dosage: WAS TITRATED BY 25MG OVER 8 DAYS TO 200 MG
  2. CLOZAPINE [Suspect]
     Active Substance: CLOZAPINE
     Indication: Bipolar I disorder
     Dosage: INCREASED TO 225 MG FOR RESIDUAL SYMPTOMS ON EVENING OF DAY 12
  3. CLOZAPINE [Suspect]
     Active Substance: CLOZAPINE
     Indication: Bipolar I disorder
     Dosage: WAS TITRATED BY 25MG OVER 8 DAYS TO 200 MG

REACTIONS (7)
  - Chest pain [Unknown]
  - Dyspnoea [Unknown]
  - Myocardial oedema [Unknown]
  - Sinus tachycardia [Unknown]
  - Off label use [Unknown]
  - Pyrexia [Unknown]
  - Myocarditis [Unknown]
